FAERS Safety Report 12233215 (Version 1)
Quarter: 2016Q2

REPORT INFORMATION
  Report Type: Spontaneous
  Country: US (occurrence: US)
  Receive Date: 20160404
  Receipt Date: 20160404
  Transmission Date: 20160815
  Serious: Yes (Other)
  Sender: FDA-Public Use
  Company Number: US-JNJFOC-20160322845

PATIENT
  Sex: Female

DRUGS (8)
  1. COPPER IUD [Concomitant]
     Active Substance: COPPER\INTRAUTERINE DEVICE
     Indication: HYPERPLASIA
     Route: 015
  2. IBUPROFEN. [Suspect]
     Active Substance: IBUPROFEN
     Route: 065
  3. LEVONORGESTREL. [Concomitant]
     Active Substance: LEVONORGESTREL
     Indication: NEOPLASM MALIGNANT
     Route: 015
  4. LEVONORGESTREL. [Concomitant]
     Active Substance: LEVONORGESTREL
     Indication: HYPERPLASIA
     Route: 015
  5. COPPER IUD [Concomitant]
     Active Substance: COPPER\INTRAUTERINE DEVICE
     Indication: UTERINE HAEMORRHAGE
     Route: 015
  6. COPPER IUD [Concomitant]
     Active Substance: COPPER\INTRAUTERINE DEVICE
     Indication: NEOPLASM MALIGNANT
     Route: 015
  7. IBUPROFEN. [Suspect]
     Active Substance: IBUPROFEN
     Indication: PREMEDICATION
     Route: 065
  8. LEVONORGESTREL. [Concomitant]
     Active Substance: LEVONORGESTREL
     Indication: UTERINE HAEMORRHAGE
     Route: 015

REACTIONS (3)
  - Off label use [Unknown]
  - Device expulsion [Unknown]
  - Product use issue [Unknown]
